FAERS Safety Report 6336503-2 (Version None)
Quarter: 2009Q3

REPORT INFORMATION
  Report Type: 
  Country: None (occurrence: None)
  Receive Date: 20090901
  Receipt Date: 20090824
  Transmission Date: 20100115
  Serious: Yes (Hospitalization, Other)
  Sender: FDA-Public Use
  Company Number: US-BAYER-200913439BCC

PATIENT
  Age: 86 Year
  Sex: Male
  Weight: 73 kg

DRUGS (6)
  1. ASPIRIN [Suspect]
     Indication: ISCHAEMIC HEART DISEASE PROPHYLAXIS
     Dosage: TOTAL DAILY DOSE: 325 MG  UNIT DOSE: 325 MG
     Route: 048
     Dates: end: 20090501
  2. ZEMPLAR [Concomitant]
  3. AMLODIPINE [Concomitant]
  4. CRESTOR [Concomitant]
  5. COZAAR [Concomitant]
  6. CARVEDILOL [Concomitant]

REACTIONS (1)
  - ULCER [None]
